FAERS Safety Report 10791861 (Version 1)
Quarter: 2015Q1

REPORT INFORMATION
  Report Type: Spontaneous
  Country: GB (occurrence: GB)
  Receive Date: 20150213
  Receipt Date: 20150213
  Transmission Date: 20150721
  Serious: Yes (Hospitalization)
  Sender: FDA-Public Use
  Company Number: GB-ROCHE-1536812

PATIENT
  Sex: Male

DRUGS (1)
  1. XENICAL [Suspect]
     Active Substance: ORLISTAT
     Indication: WEIGHT DECREASED
     Route: 048

REACTIONS (5)
  - Gingival pain [Not Recovered/Not Resolved]
  - Burning sensation [Recovering/Resolving]
  - Oral mucosal blistering [Recovering/Resolving]
  - Drug ineffective [Unknown]
  - Blister [Recovered/Resolved with Sequelae]

NARRATIVE: CASE EVENT DATE: 20141224
